FAERS Safety Report 19305981 (Version 1)
Quarter: 2021Q2

REPORT INFORMATION
  Report Type: Report from Study
  Country: CO (occurrence: CO)
  Receive Date: 20210526
  Receipt Date: 20210526
  Transmission Date: 20210717
  Serious: Yes (Other)
  Sender: FDA-Public Use
  Company Number: PHHY2018CO056662

PATIENT
  Age: 30 Year
  Sex: Female
  Weight: 44 kg

DRUGS (1)
  1. COSENTYX [Suspect]
     Active Substance: SECUKINUMAB
     Indication: ANKYLOSING SPONDYLITIS
     Dosage: 150 MG, QMO
     Route: 058
     Dates: start: 20170728

REACTIONS (14)
  - Fibromyalgia [Unknown]
  - Ankylosing spondylitis [Recovered/Resolved]
  - C-reactive protein increased [Unknown]
  - Inflammation [Unknown]
  - Pain in extremity [Unknown]
  - Pyrexia [Recovered/Resolved]
  - Arthritis [Recovered/Resolved]
  - Ankylosing spondylitis [Unknown]
  - Illness [Unknown]
  - Joint warmth [Unknown]
  - Arthritis [Unknown]
  - Movement disorder [Unknown]
  - Dysphonia [Recovered/Resolved]
  - Musculoskeletal stiffness [Unknown]

NARRATIVE: CASE EVENT DATE: 20180619
